FAERS Safety Report 4338420-6 (Version None)
Quarter: 2004Q2

REPORT INFORMATION
  Report Type: 
  Country: None (occurrence: None)
  Receive Date: 20040409
  Receipt Date: 20040326
  Transmission Date: 20050107
  Serious: No
  Sender: FDA-Public Use
  Company Number: A01200303629

PATIENT
  Age: 73 Year
  Sex: Male

DRUGS (3)
  1. OXALIPLATIN [Suspect]
     Indication: COLON CANCER STAGE III
     Dosage: 85 MG/M2 EVERY 2 WEEKS FOR 6 WEEKS
     Route: 042
  2. FLUOROURACIL [Suspect]
     Indication: COLON CANCER STAGE III
     Dosage: 500 MG/M2 1/WEEK
     Route: 040
  3. LEUCOVORIN CALCIUM [Concomitant]

REACTIONS (11)
  - ABDOMINAL DISTENSION [None]
  - ABDOMINAL PAIN [None]
  - ASTHENIA [None]
  - BIOPSY COLON ABNORMAL [None]
  - DECREASED APPETITE [None]
  - DIARRHOEA [None]
  - FAECAL OCCULT BLOOD POSITIVE [None]
  - ILEAL ULCER [None]
  - INTESTINAL ISCHAEMIA [None]
  - SMALL INTESTINAL HAEMORRHAGE [None]
  - VASCULITIS [None]
